FAERS Safety Report 5132890-1 (Version None)
Quarter: 2006Q4

REPORT INFORMATION
  Report Type: 
  Country: None (occurrence: None)
  Receive Date: 20061023
  Receipt Date: 20061009
  Transmission Date: 20070319
  Serious: Yes (Life-Threatening, Hospitalization, Disabling)
  Sender: FDA-Public Use
  Company Number: US-JNJFOC-20060100691

PATIENT
  Sex: Female
  Weight: 63.5 kg

DRUGS (2)
  1. ORTHO EVRA [Suspect]
     Indication: DRUG USE FOR UNKNOWN INDICATION
     Route: 062
     Dates: start: 20040601, end: 20050921
  2. IMITREX [Concomitant]
     Indication: DRUG USE FOR UNKNOWN INDICATION

REACTIONS (31)
  - ACTIVATED PARTIAL THROMBOPLASTIN TIME SHORTENED [None]
  - ANXIETY [None]
  - ARTHRALGIA [None]
  - ASTHENIA [None]
  - ATELECTASIS [None]
  - BUNDLE BRANCH BLOCK RIGHT [None]
  - COGNITIVE DISORDER [None]
  - DEPRESSION [None]
  - DIZZINESS [None]
  - DYSARTHRIA [None]
  - ELECTROCARDIOGRAM T WAVE INVERSION [None]
  - EPISTAXIS [None]
  - FIBRIN D DIMER INCREASED [None]
  - FLAT AFFECT [None]
  - HYPOXIC ENCEPHALOPATHY [None]
  - JOINT SWELLING [None]
  - LUNG NEOPLASM [None]
  - MEMORY IMPAIRMENT [None]
  - MENORRHAGIA [None]
  - MIGRAINE [None]
  - MITRAL VALVE INCOMPETENCE [None]
  - MUSCULOSKELETAL CHEST PAIN [None]
  - NIGHT SWEATS [None]
  - OEDEMA PERIPHERAL [None]
  - PALPITATIONS [None]
  - POST-TRAUMATIC STRESS DISORDER [None]
  - PULMONARY EMBOLISM [None]
  - SLEEP DISORDER [None]
  - SLEEP TERROR [None]
  - TRICUSPID VALVE INCOMPETENCE [None]
  - WEIGHT DECREASED [None]
